FAERS Safety Report 4430677-6 (Version None)
Quarter: 2004Q3

REPORT INFORMATION
  Report Type: 
  Country: None (occurrence: None)
  Receive Date: 20040819
  Receipt Date: 20040819
  Transmission Date: 20050211
  Serious: Yes (Hospitalization)
  Sender: FDA-Public Use
  Company Number: None

PATIENT
  Sex: Male
  Weight: 64.4108 kg

DRUGS (8)
  1. DILANTIN [Suspect]
     Indication: CONVULSION
     Dosage: 100 MG 4 CAPSULES PO QHS [ ON PHENYTOIN SINCE 2000 AT CURRENT DOSE SINCE 4/1/03
     Route: 048
     Dates: start: 20000101
  2. AMLODIPINE [Concomitant]
  3. TAMSILOSIN [Concomitant]
  4. SENNA [Concomitant]
  5. FOLIC ACID [Concomitant]
  6. FOSINOPRIL SODIUM [Concomitant]
  7. LEVOTHYROXINE SODIUM [Concomitant]
  8. QUETIAPINE [Concomitant]

REACTIONS (5)
  - ATAXIA [None]
  - CLOSED HEAD INJURY [None]
  - CONFUSIONAL STATE [None]
  - FALL [None]
  - LACERATION [None]
